FAERS Safety Report 10252211 (Version 1)
Quarter: 2014Q2

REPORT INFORMATION
  Report Type: Spontaneous
  Country: RU (occurrence: RU)
  Receive Date: 20140623
  Receipt Date: 20140623
  Transmission Date: 20141212
  Serious: Yes (Other)
  Sender: FDA-Public Use
  Company Number: RU-JNJFOC-20140611716

PATIENT
  Sex: 0

DRUGS (18)
  1. DOXORUBICIN HYDROCHLORIDE [Suspect]
     Indication: NON-HODGKIN^S LYMPHOMA
     Route: 064
  2. DOXORUBICIN HYDROCHLORIDE [Suspect]
     Indication: HODGKIN^S DISEASE
     Route: 064
  3. BLEOMYCIN [Suspect]
     Indication: NON-HODGKIN^S LYMPHOMA
     Route: 064
  4. BLEOMYCIN [Suspect]
     Indication: HODGKIN^S DISEASE
     Route: 064
  5. DACARBAZINE [Suspect]
     Indication: NON-HODGKIN^S LYMPHOMA
     Route: 064
  6. DACARBAZINE [Suspect]
     Indication: HODGKIN^S DISEASE
     Route: 064
  7. VINBLASTINE [Suspect]
     Indication: NON-HODGKIN^S LYMPHOMA
     Route: 064
  8. VINBLASTINE [Suspect]
     Indication: HODGKIN^S DISEASE
     Route: 064
  9. CYCLOPHOSPHAMIDE [Suspect]
     Indication: NON-HODGKIN^S LYMPHOMA
     Route: 064
  10. CYCLOPHOSPHAMIDE [Suspect]
     Indication: HODGKIN^S DISEASE
     Route: 064
  11. PREDNISONE [Suspect]
     Indication: NON-HODGKIN^S LYMPHOMA
     Route: 064
  12. PREDNISONE [Suspect]
     Indication: HODGKIN^S DISEASE
     Route: 064
  13. VINCRISTINE [Suspect]
     Indication: NON-HODGKIN^S LYMPHOMA
     Route: 064
  14. VINCRISTINE [Suspect]
     Indication: HODGKIN^S DISEASE
     Route: 064
  15. RITUXIMAB [Suspect]
     Indication: NON-HODGKIN^S LYMPHOMA
     Route: 064
  16. RITUXIMAB [Suspect]
     Indication: HODGKIN^S DISEASE
     Route: 064
  17. ETOPOSIDE [Suspect]
     Indication: NON-HODGKIN^S LYMPHOMA
     Route: 064
  18. ETOPOSIDE [Suspect]
     Indication: HODGKIN^S DISEASE
     Route: 064

REACTIONS (2)
  - Premature baby [Unknown]
  - Foetal exposure during pregnancy [Unknown]
